FAERS Safety Report 17756219 (Version 1)
Quarter: 2020Q2

REPORT INFORMATION
  Report Type: Spontaneous
  Country: US (occurrence: US)
  Receive Date: 20200507
  Receipt Date: 20200507
  Transmission Date: 20200714
  Serious: Yes (Hospitalization)
  Sender: FDA-Public Use
  Company Number: None

PATIENT
  Age: 72 Year
  Sex: Male

DRUGS (2)
  1. EMPAGLIFLOZIN (EMPAGLIFLOZIN 25MG TAB) [Suspect]
     Active Substance: EMPAGLIFLOZIN
     Indication: DIABETES MELLITUS
     Dosage: 25 MG AM PO
     Route: 048
     Dates: start: 20190516, end: 20200401
  2. EMPAGLIFLOZIN (EMPAGLIFLOZIN 25MG TAB) [Suspect]
     Active Substance: EMPAGLIFLOZIN
     Indication: CARDIAC OPERATION
     Dosage: 25 MG AM PO
     Route: 048
     Dates: start: 20190516, end: 20200401

REACTIONS (1)
  - Necrotising fasciitis [None]

NARRATIVE: CASE EVENT DATE: 20200401
